FAERS Safety Report 8048474-1 (Version None)
Quarter: 2012Q1

REPORT INFORMATION
  Report Type: 
  Country: None (occurrence: None)
  Receive Date: 20120117
  Receipt Date: 20120105
  Transmission Date: 20120608
  Serious: No
  Sender: FDA-Public Use
  Company Number: US-PFIZER INC-2012004714

PATIENT
  Sex: Male
  Weight: 40.816 kg

DRUGS (2)
  1. GENOTROPIN [Suspect]
     Indication: GROWTH HORMONE DEFICIENCY
     Dosage: UNK
     Dates: start: 20101212
  2. SYNTHROID [Concomitant]
     Indication: THYROID DISORDER
     Dosage: 75 UG, 2X/DAY
     Route: 048

REACTIONS (2)
  - TENDON PAIN [None]
  - SEVER'S DISEASE [None]
